FAERS Safety Report 19760151 (Version 1)
Quarter: 2021Q3

REPORT INFORMATION
  Report Type: Report from Study
  Country: US (occurrence: US)
  Receive Date: 20210830
  Receipt Date: 20210830
  Transmission Date: 20211014
  Serious: Yes (Other)
  Sender: FDA-Public Use
  Company Number: US-EMD SERONO-9260543

PATIENT
  Age: 70 Year
  Sex: Female

DRUGS (2)
  1. REBIF [Suspect]
     Active Substance: INTERFERON BETA-1A
     Indication: PRODUCT USED FOR UNKNOWN INDICATION
     Dosage: REBIF PREFILLED SYRINGE
     Route: 058
     Dates: start: 20030616
  2. COVID?19 VACCINE [Concomitant]
     Indication: COVID-19 IMMUNISATION
     Dosage: FIRST DOSE: 22 FEB 2021?SECOND DOSE: 22 MAR 2021

REACTIONS (3)
  - Coronary artery occlusion [Recovering/Resolving]
  - Asthenia [Recovering/Resolving]
  - Heart valve incompetence [Recovering/Resolving]

NARRATIVE: CASE EVENT DATE: 2021
